FAERS Safety Report 5631575-2 (Version None)
Quarter: 2008Q1

REPORT INFORMATION
  Report Type: 
  Country: None (occurrence: None)
  Receive Date: 20080215
  Receipt Date: 20080206
  Transmission Date: 20080703
  Serious: Yes (Other)
  Sender: FDA-Public Use
  Company Number: 2008SP000288

PATIENT
  Sex: Male

DRUGS (2)
  1. LUNESTA [Suspect]
     Dosage: 90 MG;ORAL
     Route: 048
  2. ALCOHOL /00031101 [Suspect]

REACTIONS (6)
  - ALCOHOL USE [None]
  - COGNITIVE DISORDER [None]
  - OVERDOSE [None]
  - SELF-MEDICATION [None]
  - SUICIDAL BEHAVIOUR [None]
  - SUICIDE ATTEMPT [None]
